FAERS Safety Report 8211624-8 (Version None)
Quarter: 2012Q1

REPORT INFORMATION
  Report Type: 
  Country: None (occurrence: None)
  Receive Date: 20120315
  Receipt Date: 20120307
  Transmission Date: 20120608
  Serious: Yes (Hospitalization)
  Sender: FDA-Public Use
  Company Number: CA-JNJFOC-20110700624

PATIENT
  Sex: Male

DRUGS (18)
  1. PERINDOPRIL ERBUMINE [Concomitant]
     Indication: HYPERTENSION
     Route: 048
     Dates: start: 20060601
  2. DIDROCAL [Concomitant]
     Indication: BONE DENSITY DECREASED
     Route: 048
     Dates: start: 20070601
  3. IBUPROFEN (ADVIL) [Concomitant]
     Indication: BACK PAIN
     Route: 048
     Dates: start: 20110401
  4. ASPIRIN [Concomitant]
     Indication: BACK PAIN
     Route: 048
     Dates: start: 20110401
  5. ARTHROTEC [Concomitant]
     Route: 048
     Dates: start: 20110504
  6. ZOLADEX [Concomitant]
     Indication: HORMONE THERAPY
     Route: 058
     Dates: start: 20100505
  7. INDAPAMIDE [Concomitant]
     Indication: HYPERTENSION
     Route: 048
     Dates: start: 20060601
  8. ZOLADEX [Concomitant]
     Route: 058
     Dates: start: 19980301
  9. POTASSIUM CHLORIDE [Concomitant]
     Indication: HYPOKALAEMIA
     Route: 048
     Dates: start: 20110309
  10. PREDNISONE TAB [Suspect]
     Indication: PROSTATE CANCER METASTATIC
     Route: 048
     Dates: start: 20100505
  11. PREDNISONE TAB [Suspect]
     Route: 048
     Dates: start: 20100203
  12. MOTRIN [Concomitant]
     Indication: BACK PAIN
     Route: 048
  13. ARTHROTEC [Concomitant]
     Indication: BACK PAIN
     Route: 048
     Dates: start: 20110517, end: 20110601
  14. ARTHROTEC [Concomitant]
     Route: 048
     Dates: start: 20110504
  15. ABIRATERONE ACETATE [Suspect]
     Route: 048
  16. ROBAXACET [Concomitant]
     Indication: BACK PAIN
     Route: 048
     Dates: start: 20110401
  17. ABIRATERONE ACETATE [Suspect]
     Indication: PROSTATE CANCER METASTATIC
     Route: 048
     Dates: start: 20100505
  18. ARTHROTEC [Concomitant]
     Route: 048
     Dates: start: 20110517, end: 20110601

REACTIONS (1)
  - SPINAL FRACTURE [None]
